FAERS Safety Report 9569433 (Version 1)
Quarter: 2013Q3

REPORT INFORMATION
  Report Type: Spontaneous
  Country: US (occurrence: US)
  Receive Date: 20130930
  Receipt Date: 20130930
  Transmission Date: 20140515
  Serious: No
  Sender: FDA-Public Use
  Company Number: US-AMGEN-USASP2013057740

PATIENT
  Age: 57 Year
  Sex: Female

DRUGS (14)
  1. ENBREL [Suspect]
     Indication: RHEUMATOID ARTHRITIS
     Dosage: UNK UNK, 2 TIMES/WK
     Route: 058
     Dates: start: 2000, end: 2008
  2. ASPIRIN [Concomitant]
     Dosage: UNK
  3. MULTIVITAMINS, PLAIN [Concomitant]
     Dosage: UNK
  4. COREG [Concomitant]
     Dosage: UNK
  5. FLEXERIL                           /00428402/ [Concomitant]
     Dosage: UNK
  6. LASIX                              /00032601/ [Concomitant]
     Dosage: UNK
  7. LISINOPRIL [Concomitant]
     Dosage: UNK
  8. PREDNISONE [Concomitant]
     Dosage: UNK
  9. PRILOSEC                           /00661201/ [Concomitant]
     Dosage: UNK
  10. PROAIR                             /00139502/ [Concomitant]
     Dosage: UNK
  11. SINGULAIR [Concomitant]
     Dosage: UNK
  12. TRAMADOL [Concomitant]
     Dosage: UNK
  13. XELJANZ [Concomitant]
     Dosage: UNK
  14. ZOCOR [Concomitant]
     Dosage: UNK

REACTIONS (1)
  - Drug effect decreased [Recovered/Resolved]
